FAERS Safety Report 15834774 (Version 1)
Quarter: 2019Q1

REPORT INFORMATION
  Report Type: Spontaneous
  Country: JP (occurrence: JP)
  Receive Date: 20190116
  Receipt Date: 20190116
  Transmission Date: 20190417
  Serious: Yes (Hospitalization, Other)
  Sender: FDA-Public Use
  Company Number: JP-FRESENIUS KABI-FK201900512

PATIENT
  Age: 71 Year
  Sex: Male

DRUGS (9)
  1. TRANEXAMIC ACID (MANUFACTURER UNKNOWN) [Suspect]
     Active Substance: TRANEXAMIC ACID
     Indication: PRODUCT USED FOR UNKNOWN INDICATION
     Route: 042
  2. PROPOFOL. [Concomitant]
     Active Substance: PROPOFOL
     Indication: ANAESTHESIA
     Route: 065
  3. SEVOFLURANE. [Concomitant]
     Active Substance: SEVOFLURANE
     Indication: ANAESTHESIA
     Route: 065
  4. TRANEXAMIC ACID (MANUFACTURER UNKNOWN) [Suspect]
     Active Substance: TRANEXAMIC ACID
     Route: 042
  5. MIDAZOLAM [Concomitant]
     Active Substance: MIDAZOLAM HYDROCHLORIDE
     Indication: ANAESTHESIA
     Route: 065
  6. FENTANYL. [Concomitant]
     Active Substance: FENTANYL
     Indication: ANAESTHESIA
     Route: 065
  7. TRANEXAMIC ACID (MANUFACTURER UNKNOWN) [Suspect]
     Active Substance: TRANEXAMIC ACID
     Route: 042
  8. DEXMEDETOMIDINE. [Concomitant]
     Active Substance: DEXMEDETOMIDINE
     Indication: SEDATIVE THERAPY
     Route: 065
  9. ROCURONIUM BROMIDE. [Concomitant]
     Active Substance: ROCURONIUM BROMIDE
     Indication: ANAESTHESIA
     Route: 065

REACTIONS (2)
  - Pneumonia aspiration [Unknown]
  - Generalised tonic-clonic seizure [Recovered/Resolved]
